FAERS Safety Report 9321257 (Version 4)
Quarter: 2013Q2

REPORT INFORMATION
  Report Type: Spontaneous
  Country: US (occurrence: US)
  Receive Date: 20130531
  Receipt Date: 20130628
  Transmission Date: 20140414
  Serious: Yes (Hospitalization)
  Sender: FDA-Public Use
  Company Number: US-JNJFOC-20130515797

PATIENT
  Age: 89 Year
  Sex: Female
  Weight: 71.22 kg

DRUGS (2)
  1. XARELTO [Suspect]
     Indication: CEREBROVASCULAR ACCIDENT PROPHYLAXIS
     Route: 048
     Dates: start: 20130305, end: 20130514
  2. XARELTO [Suspect]
     Indication: ATRIAL FIBRILLATION
     Route: 048
     Dates: start: 20130305, end: 20130514

REACTIONS (3)
  - Haemothorax [Recovered/Resolved with Sequelae]
  - Haematemesis [Unknown]
  - Haemoglobin decreased [Unknown]
